FAERS Safety Report 4991065-7 (Version None)
Quarter: 2006Q2

REPORT INFORMATION
  Report Type: 
  Country: None (occurrence: None)
  Receive Date: 20060428
  Receipt Date: 20060418
  Transmission Date: 20061013
  Serious: Yes (Other)
  Sender: FDA-Public Use
  Company Number: B0421401A

PATIENT
  Age: 66 Year
  Sex: Male

DRUGS (2)
  1. LITHIUM CARBONATE [Suspect]
     Indication: BIPOLAR DISORDER
     Dosage: 600 MG TWICE PER DAY
  2. METRONIDAZOLE [Suspect]
     Indication: URINARY TRACT INFECTION

REACTIONS (8)
  - CEREBRAL HYPOPERFUSION [None]
  - COGNITIVE DISORDER [None]
  - CONFUSIONAL STATE [None]
  - DISTURBANCE IN ATTENTION [None]
  - MEMORY IMPAIRMENT [None]
  - MENTAL IMPAIRMENT [None]
  - NEUROPSYCHOLOGICAL TEST ABNORMAL [None]
  - SPEECH DISORDER [None]
